FAERS Safety Report 9184158 (Version 1)
Quarter: 2013Q1

REPORT INFORMATION
  Report Type: Spontaneous
  Country: US (occurrence: US)
  Receive Date: 20130322
  Receipt Date: 20130322
  Transmission Date: 20140127
  Serious: No
  Sender: FDA-Public Use
  Company Number: US-BRISTOL-MYERS SQUIBB COMPANY-16450140

PATIENT
  Age: 57 Year
  Sex: Male
  Weight: 129 kg

DRUGS (1)
  1. ERBITUX [Suspect]
     Indication: COLORECTAL CANCER
     Dates: start: 20120227

REACTIONS (3)
  - Asthenia [Unknown]
  - Influenza [Unknown]
  - Fungal infection [Unknown]
